FAERS Safety Report 9146427 (Version 1)
Quarter: 2013Q1

REPORT INFORMATION
  Report Type: Spontaneous
  Country: US (occurrence: None)
  Receive Date: 20130225
  Receipt Date: 20130225
  Transmission Date: 20140127
  Serious: Yes (Death)
  Sender: FDA-Public Use
  Company Number: UTC-029258

PATIENT
  Age: 61 Year
  Sex: Male
  Weight: 78.6 kg

DRUGS (2)
  1. REMODULIN [Suspect]
     Indication: COR PULMONALE CHRONIC
     Dosage: 43.2 UG/KG (0.03 UG/KG, 1 IN 1 MIN), INTRAVENOUS DRIP
     Dates: start: 20091203
  2. COUMADIN (WARFARIN SODIUM) [Concomitant]

REACTIONS (1)
  - Death [None]
